FAERS Safety Report 5347865-7 (Version None)
Quarter: 2007Q2

REPORT INFORMATION
  Report Type: 
  Country: None (occurrence: None)
  Receive Date: 20070606
  Receipt Date: 20070529
  Transmission Date: 20071010
  Serious: Yes (Other)
  Sender: FDA-Public Use
  Company Number: JP-MERCK-0705USA03367

PATIENT
  Age: 75 Year
  Sex: Male

DRUGS (6)
  1. SINGULAIR [Suspect]
     Indication: ASTHMA
     Route: 048
     Dates: start: 20061206, end: 20070425
  2. UNIPHYL [Concomitant]
     Route: 048
     Dates: start: 20061210, end: 20070424
  3. KETANRIFT [Concomitant]
     Route: 048
  4. MINZAIN [Concomitant]
     Route: 048
  5. SEDAGASTON [Concomitant]
     Route: 048
  6. COLCHICINE [Concomitant]
     Route: 048

REACTIONS (1)
  - RHABDOMYOLYSIS [None]
